FAERS Safety Report 8543473-5 (Version None)
Quarter: 2012Q3

REPORT INFORMATION
  Report Type: 
  Country: None (occurrence: None)
  Receive Date: 20120727
  Receipt Date: 20120725
  Transmission Date: 20120928
  Serious: Yes (Death, Hospitalization, Other)
  Sender: FDA-Public Use
  Company Number: PHEH2012US014481

PATIENT
  Sex: Male
  Weight: 69.9 kg

DRUGS (1)
  1. ZOMETA [Suspect]
     Dosage: 4 MG, MONTHLY
     Route: 042
     Dates: end: 20120328

REACTIONS (11)
  - METASTASES TO CENTRAL NERVOUS SYSTEM [None]
  - BRAIN OEDEMA [None]
  - ERYTHEMA [None]
  - LUNG CANCER METASTATIC [None]
  - METASTASES TO BONE [None]
  - ASTHENIA [None]
  - OSTEONECROSIS OF JAW [None]
  - PAIN [None]
  - GENERAL PHYSICAL HEALTH DETERIORATION [None]
  - SWELLING [None]
  - APHAGIA [None]
